FAERS Safety Report 12980224 (Version 2)
Quarter: 2017Q2

REPORT INFORMATION
  Report Type: Spontaneous
  Country: US (occurrence: US)
  Receive Date: 20161128
  Receipt Date: 20170607
  Transmission Date: 20170830
  Serious: Yes (Other)
  Sender: FDA-Public Use
  Company Number: US-TEVA-715122USA

PATIENT
  Age: 49 Year
  Sex: Female

DRUGS (2)
  1. GLIMEPIRIDE. [Suspect]
     Active Substance: GLIMEPIRIDE
     Dosage: 12 MILLIGRAM DAILY;
     Dates: start: 20151130, end: 20151206
  2. VITAMIN D [Concomitant]
     Active Substance: CHOLECALCIFEROL

REACTIONS (21)
  - Haemorrhage [Unknown]
  - Blood glucose decreased [Unknown]
  - Mental impairment [Recovering/Resolving]
  - Suicidal ideation [Recovered/Resolved]
  - Gait disturbance [Not Recovered/Not Resolved]
  - Dizziness [Recovered/Resolved]
  - Seizure [Recovered/Resolved]
  - Palpitations [Recovered/Resolved]
  - Weight increased [Recovered/Resolved]
  - Migraine [Recovered/Resolved]
  - Craniocerebral injury [Recovered/Resolved]
  - Tremor [Recovered/Resolved]
  - Contusion [Recovered/Resolved]
  - Hypertension [Not Recovered/Not Resolved]
  - Myalgia [Recovering/Resolving]
  - Drug dispensing error [Unknown]
  - Loss of consciousness [Recovered/Resolved]
  - Blindness [Recovered/Resolved]
  - Amnesia [Recovering/Resolving]
  - Fatigue [Recovered/Resolved]
  - Accidental overdose [Unknown]

NARRATIVE: CASE EVENT DATE: 20151130
